FAERS Safety Report 16058009 (Version 8)
Quarter: 2021Q2

REPORT INFORMATION
  Report Type: Spontaneous
  Country: DE (occurrence: DE)
  Receive Date: 20190311
  Receipt Date: 20210521
  Transmission Date: 20210716
  Serious: Yes (Death, Life-Threatening, Hospitalization, Other)
  Sender: FDA-Public Use
  Company Number: PHHY2019DE051724

PATIENT
  Age: 79 Year
  Sex: Female
  Weight: 72 kg

DRUGS (51)
  1. VALSARTAN 1A PHARMA 160 MG ? FILMTABLETTEN [Suspect]
     Active Substance: VALSARTAN
     Indication: HYPERTENSION
     Dosage: UNK UNK, BID (320 OR 160 MG BID)
     Route: 065
     Dates: start: 201308
  2. VALSARTAN 1A PHARMA 160 MG ? FILMTABLETTEN [Suspect]
     Active Substance: VALSARTAN
     Dosage: UNK
     Route: 065
     Dates: start: 20180313
  3. VALSARTAN HEXAL 320 MG FILMTABLETTEN [Suspect]
     Active Substance: VALSARTAN
     Dosage: 320 MG, QD (160 MILLIGRAM, BID)
     Route: 065
     Dates: start: 201403
  4. VALSARTAN MYLAN [Suspect]
     Active Substance: VALSARTAN
     Dosage: 320 MG, QD
     Route: 065
     Dates: start: 201308
  5. VALSARTAN. [Concomitant]
     Active Substance: VALSARTAN
     Indication: PRODUCT USED FOR UNKNOWN INDICATION
     Dosage: (1?0?1 (AT HOSPITAL DISCHARGE))UNK, BID
     Route: 065
     Dates: start: 20180505
  6. BISOPROLOL [Concomitant]
     Active Substance: BISOPROLOL
     Dosage: UNK (1/2?0?0 AT HOSPITAL DISCHARGE (10/25))
     Route: 065
     Dates: start: 20180505
  7. BISOPROLOL DURA PLUS [Concomitant]
     Indication: PRODUCT USED FOR UNKNOWN INDICATION
     Dosage: UNK
     Route: 065
  8. ELIQUIS [Concomitant]
     Active Substance: APIXABAN
     Indication: PRODUCT USED FOR UNKNOWN INDICATION
     Dosage: UNK
     Route: 065
     Dates: start: 20181220
  9. ASPIRIN. [Concomitant]
     Active Substance: ASPIRIN
     Indication: TRANSIENT ISCHAEMIC ATTACK
     Dosage: UNK
     Route: 065
  10. HYDROMORPHONE [Concomitant]
     Active Substance: HYDROMORPHONE
     Indication: PRODUCT USED FOR UNKNOWN INDICATION
     Dosage: UNK
     Route: 065
     Dates: start: 20190214
  11. HALOPERIDOL. [Concomitant]
     Active Substance: HALOPERIDOL
     Indication: PRODUCT USED FOR UNKNOWN INDICATION
     Dosage: UNK
     Route: 065
     Dates: start: 20190214
  12. VALSARTAN HEXAL 320 MG FILMTABLETTEN [Suspect]
     Active Substance: VALSARTAN
     Dosage: 320 MG, QD (160 MILLIGRAM, BID)
     Route: 065
     Dates: start: 201402
  13. BISOPROLOL [Concomitant]
     Active Substance: BISOPROLOL
     Dosage: 1/2?0?0 (AT HOSPITAL DISCHARGE)
     Route: 065
     Dates: start: 20181206
  14. MACROGOL [Concomitant]
     Active Substance: POLYETHYLENE GLYCOLS
     Indication: PRODUCT USED FOR UNKNOWN INDICATION
     Dosage: UNK
     Route: 065
     Dates: start: 20190214
  15. VALSARTAN HEXAL 320 MG FILMTABLETTEN [Suspect]
     Active Substance: VALSARTAN
     Dosage: 320 MG, QD
     Route: 065
     Dates: start: 201403
  16. VALSARTAN MYLAN [Suspect]
     Active Substance: VALSARTAN
     Dosage: 320 MG, QD (160 MILLIGRAM, BID)
     Route: 065
     Dates: start: 201702, end: 201807
  17. PANTOZOL [Concomitant]
     Active Substance: PANTOPRAZOLE SODIUM
     Indication: PRODUCT USED FOR UNKNOWN INDICATION
     Dosage: UNK 1?0?0 (AT HOSPITAL DISCHARGE)
     Route: 065
     Dates: start: 20181206
  18. BISOPROLOL [Concomitant]
     Active Substance: BISOPROLOL
     Indication: PRODUCT USED FOR UNKNOWN INDICATION
     Dosage: UNK 1/2?0?0 AT HOSPITAL DISCHARGE
     Route: 065
  19. VALSARTAN 1A PHARMA 160 MG ? FILMTABLETTEN [Suspect]
     Active Substance: VALSARTAN
     Dosage: UNK
     Route: 065
     Dates: start: 20170628
  20. VALSARTAN 1A PHARMA 160 MG ? FILMTABLETTEN [Suspect]
     Active Substance: VALSARTAN
     Dosage: UNK (320 OR 160 MG BID)
     Route: 065
     Dates: start: 201708
  21. VALSARTAN HEXAL 320 MG FILMTABLETTEN [Suspect]
     Active Substance: VALSARTAN
     Indication: HYPERTENSION
     Dosage: 320 MG, QD
     Route: 065
     Dates: start: 201308, end: 201807
  22. VALSARTAN MYLAN [Suspect]
     Active Substance: VALSARTAN
     Indication: HYPERTENSION
     Dosage: 640 MG, QD (320 MILLIGRAM, BID)
     Route: 065
     Dates: start: 2005
  23. HCT [Concomitant]
     Active Substance: HYDROCHLOROTHIAZIDE
     Indication: PRODUCT USED FOR UNKNOWN INDICATION
     Dosage: UNK (1/2?0?0 (AT HOSPITAL DISCHARGE))
     Route: 065
     Dates: start: 20181206
  24. L?THYROXIN [Concomitant]
     Active Substance: LEVOTHYROXINE SODIUM
     Indication: PRODUCT USED FOR UNKNOWN INDICATION
     Dosage: UNK 1?0?0 (AT HOSPITAL DISCHARGE)
     Route: 065
     Dates: start: 20180505
  25. DEXAMETHASON [Concomitant]
     Active Substance: DEXAMETHASONE
     Indication: PRODUCT USED FOR UNKNOWN INDICATION
     Dosage: UNK 1?1?1 (AT HOSPITAL DISCHARGE)
     Route: 065
     Dates: start: 20181206
  26. DIOVAN [Concomitant]
     Active Substance: VALSARTAN
     Indication: PRODUCT USED FOR UNKNOWN INDICATION
     Dosage: UNK
     Route: 065
  27. VALSARTAN 1A PHARMA 160 MG ? FILMTABLETTEN [Suspect]
     Active Substance: VALSARTAN
     Dosage: UNK (320 OR 160 MG BID)
     Route: 065
     Dates: start: 201312
  28. VALSARTAN 1A PHARMA 160 MG ? FILMTABLETTEN [Suspect]
     Active Substance: VALSARTAN
     Dosage: UNK
     Route: 065
     Dates: start: 20171122
  29. VALSARTAN HEXAL 320 MG FILMTABLETTEN [Suspect]
     Active Substance: VALSARTAN
     Dosage: 320 MG, QD (160 MILLIGRAM, BID)
     Route: 065
     Dates: start: 201310
  30. VALSARTAN MYLAN [Suspect]
     Active Substance: VALSARTAN
     Dosage: 320 MG, QD (160 MILLIGRAM, BID)
     Route: 065
     Dates: start: 201402
  31. CLEXANE [Concomitant]
     Active Substance: ENOXAPARIN SODIUM
     Indication: PRODUCT USED FOR UNKNOWN INDICATION
     Dosage: UNK
     Route: 065
  32. VALSARTAN 1A PHARMA 160 MG ? FILMTABLETTEN [Suspect]
     Active Substance: VALSARTAN
     Dosage: UNK
     Route: 065
     Dates: start: 20170206
  33. VALSARTAN 1A PHARMA 160 MG ? FILMTABLETTEN [Suspect]
     Active Substance: VALSARTAN
     Dosage: UNK
     Route: 065
     Dates: start: 20181126
  34. VALSARTAN MYLAN [Suspect]
     Active Substance: VALSARTAN
     Dosage: UNK  (2 X 80)
     Route: 065
     Dates: start: 201106
  35. VALSARTAN MYLAN [Suspect]
     Active Substance: VALSARTAN
     Dosage: UNK
     Route: 065
     Dates: start: 20130204
  36. VALSARTAN. [Concomitant]
     Active Substance: VALSARTAN
     Dosage: UNK, BID (1?0?1 (AT HOSPITAL DISCHARGE))
     Route: 065
     Dates: start: 20181206
  37. NEURAX [Concomitant]
     Indication: PRODUCT USED FOR UNKNOWN INDICATION
     Dosage: UNK
     Route: 065
     Dates: start: 20190214
  38. VALSARTAN 1A PHARMA 160 MG ? FILMTABLETTEN [Suspect]
     Active Substance: VALSARTAN
     Dosage: UNK
     Route: 065
     Dates: start: 20170505
  39. ACTRAPID [Concomitant]
     Active Substance: INSULIN HUMAN
     Indication: PRODUCT USED FOR UNKNOWN INDICATION
     Dosage: UNK
     Route: 065
     Dates: start: 20181206
  40. AMLODIPIN [Concomitant]
     Active Substance: AMLODIPINE BESYLATE
     Dosage: UNK 1?0?1 (AT HOSPITAL DISCHARGE)
     Route: 065
     Dates: start: 20181206
  41. L?THYROXIN [Concomitant]
     Active Substance: LEVOTHYROXINE SODIUM
     Dosage: UNK 1?0?0 (AT HOSPITAL DISCHARGE)
     Route: 065
     Dates: start: 20181206
  42. ACTRAPHANE [Concomitant]
     Active Substance: INSULIN HUMAN
     Indication: PRODUCT USED FOR UNKNOWN INDICATION
     Dosage: 30 INNOLET FER 5 X3 ML
     Route: 065
     Dates: start: 20190104
  43. TAVOR [Concomitant]
     Indication: PRODUCT USED FOR UNKNOWN INDICATION
     Dosage: UNK
     Route: 065
     Dates: start: 20190218
  44. PANTOPRAZOL AL [Concomitant]
     Active Substance: PANTOPRAZOLE SODIUM
     Indication: PRODUCT USED FOR UNKNOWN INDICATION
     Dosage: UNK
     Route: 065
     Dates: start: 20110728
  45. VALSARTAN 1A PHARMA 160 MG ? FILMTABLETTEN [Suspect]
     Active Substance: VALSARTAN
     Dosage: UNK (320 OR 160 MG BID)
     Route: 065
     Dates: start: 20131230
  46. VALSARTAN 1A PHARMA 160 MG ? FILMTABLETTEN [Suspect]
     Active Substance: VALSARTAN
     Dosage: UNK
     Route: 065
     Dates: start: 20170907
  47. VALSARTAN 1A PHARMA 160 MG ? FILMTABLETTEN [Suspect]
     Active Substance: VALSARTAN
     Dosage: UNK
     Route: 065
     Dates: start: 20180702
  48. VALSARTAN MYLAN [Suspect]
     Active Substance: VALSARTAN
     Dosage: 320 MG, QD (160 MILLIGRAM, BID)
     Route: 065
     Dates: start: 201310
  49. VALSARTAN MYLAN [Suspect]
     Active Substance: VALSARTAN
     Dosage: 320 MG, QD (160 MILLIGRAM, BID)
     Route: 065
     Dates: start: 201403
  50. AMLODIPIN [Concomitant]
     Active Substance: AMLODIPINE BESYLATE
     Indication: PRODUCT USED FOR UNKNOWN INDICATION
     Dosage: UNK 1?0?1 (AT HOSPITAL DISCHARGE)
     Route: 065
     Dates: start: 20180505
  51. DIGIMERCK [Concomitant]
     Active Substance: DIGITOXIN
     Indication: PRODUCT USED FOR UNKNOWN INDICATION
     Dosage: MINOR 0.07
     Route: 065
     Dates: start: 20190117

REACTIONS (44)
  - Cognitive disorder [Unknown]
  - Melanocytic naevus [Unknown]
  - Urinary tract infection [Unknown]
  - Osteoarthritis [Unknown]
  - Renal neoplasm [Unknown]
  - Postoperative renal failure [Unknown]
  - Metastases to lung [Unknown]
  - Cardiac failure [Unknown]
  - Erysipelas [Unknown]
  - Functional gastrointestinal disorder [Unknown]
  - Vomiting [Unknown]
  - Meniscal degeneration [Unknown]
  - Joint swelling [Unknown]
  - Hypotension [Unknown]
  - Metastases to central nervous system [Unknown]
  - Urinary retention [Unknown]
  - Inflammatory marker increased [Unknown]
  - Anaemia [Unknown]
  - Dysuria [Unknown]
  - Hypothyroidism [Unknown]
  - Basal cell carcinoma [Unknown]
  - Hypertension [Unknown]
  - Renal cell carcinoma [Fatal]
  - Hypoaesthesia [Unknown]
  - Cholelithiasis [Unknown]
  - Visual impairment [Unknown]
  - Pruritus [Unknown]
  - Brain oedema [Unknown]
  - Pustule [Unknown]
  - Varicose vein [Unknown]
  - Bladder disorder [Unknown]
  - General physical health deterioration [Unknown]
  - Aortic dilatation [Unknown]
  - Renal cyst [Unknown]
  - Loss of personal independence in daily activities [Unknown]
  - Rash [Unknown]
  - External ear disorder [Unknown]
  - Personality change [Unknown]
  - Drug intolerance [Unknown]
  - Blood glucose increased [Unknown]
  - Blood glucose abnormal [Unknown]
  - Tinnitus [Unknown]
  - Tendon rupture [Unknown]
  - Large intestine infection [Unknown]

NARRATIVE: CASE EVENT DATE: 20100122
